FAERS Safety Report 4923378-9 (Version None)
Quarter: 2006Q1

REPORT INFORMATION
  Report Type: 
  Country: None (occurrence: None)
  Receive Date: 20060227
  Receipt Date: 20060216
  Transmission Date: 20060701
  Serious: Yes (Hospitalization, Disabling, Other)
  Sender: FDA-Public Use
  Company Number: US-JNJFOC-20060204888

PATIENT
  Sex: Female
  Weight: 60.78 kg

DRUGS (1)
  1. REMICADE [Suspect]
     Dosage: THE PATIENT HAD THREE INFUSIONS.
     Route: 042

REACTIONS (5)
  - ANAEMIA [None]
  - BURNING SENSATION [None]
  - DIFFICULTY IN WALKING [None]
  - DYSPNOEA [None]
  - PULMONARY OEDEMA [None]
